FAERS Safety Report 10182520 (Version 1)
Quarter: 2014Q2

REPORT INFORMATION
  Report Type: Spontaneous
  Country: US (occurrence: None)
  Receive Date: 20140516
  Receipt Date: 20140516
  Transmission Date: 20141212
  Serious: Yes (Hospitalization)
  Sender: FDA-Public Use
  Company Number: PRAN20140002

PATIENT
  Age: 36 Year
  Sex: Female

DRUGS (2)
  1. PROPANOLOL HCL [Suspect]
     Indication: PRODUCT USED FOR UNKNOWN INDICATION
  2. VERAPAMIL [Suspect]
     Indication: PRODUCT USED FOR UNKNOWN INDICATION

REACTIONS (11)
  - Cardiac arrest [None]
  - Exposure via ingestion [None]
  - Bradycardia [None]
  - Electrocardiogram QRS complex prolonged [None]
  - Cardiac arrest [None]
  - Aspartate aminotransferase increased [None]
  - Alanine aminotransferase increased [None]
  - Blood triglycerides increased [None]
  - Acute respiratory distress syndrome [None]
  - Encephalopathy [None]
  - Toxicity to various agents [None]
